FAERS Safety Report 5774521-3 (Version None)
Quarter: 2008Q2

REPORT INFORMATION
  Report Type: 
  Country: None (occurrence: None)
  Receive Date: 20080616
  Receipt Date: 20080609
  Transmission Date: 20081010
  Serious: Yes (Hospitalization)
  Sender: FDA-Public Use
  Company Number: JP-BOEHRINGER INGELHEIM GMBH, GERMANY-2008-BP-09231YA

PATIENT
  Age: 2 Year
  Sex: Female

DRUGS (1)
  1. TAMSULOSIN HCL [Suspect]
     Route: 048
     Dates: start: 20080608, end: 20080608

REACTIONS (1)
  - RENAL IMPAIRMENT [None]
